FAERS Safety Report 5006579-3 (Version None)
Quarter: 2006Q2

REPORT INFORMATION
  Report Type: 
  Country: None (occurrence: None)
  Receive Date: 20060519
  Receipt Date: 20060505
  Transmission Date: 20061013
  Serious: Yes (Hospitalization)
  Sender: FDA-Public Use
  Company Number: CA-AVENTIS-200614881GDDC

PATIENT
  Age: 65 Year
  Sex: Male

DRUGS (14)
  1. GLIMEPIRIDE [Suspect]
     Indication: DIABETES MELLITUS NON-INSULIN-DEPENDENT
     Dosage: DOSE: UNK
     Route: 048
     Dates: start: 20050607, end: 20060201
  2. METFORMIN [Suspect]
     Indication: DIABETES MELLITUS NON-INSULIN-DEPENDENT
     Route: 048
     Dates: start: 20000101
  3. HYDROCHLOROTHIAZIDE [Concomitant]
     Dates: start: 19950101
  4. AVAPRO [Concomitant]
     Dates: start: 20021001
  5. BISOPROLOL [Concomitant]
     Dates: start: 20041202
  6. RAMAPRIL [Concomitant]
     Dates: start: 20050317
  7. MICRO-K [Concomitant]
     Dates: start: 20050609
  8. CATAPRES [Concomitant]
     Dates: start: 20050628
  9. FUROSEMIDE [Concomitant]
     Dates: start: 20050825
  10. TYLENOL (CAPLET) [Concomitant]
     Dates: start: 20050420
  11. FELODIPINE [Concomitant]
     Dates: start: 20020101
  12. LIPITOR [Concomitant]
     Dates: start: 20020101
  13. ACETYLSALICYLIC ACID SRT [Concomitant]
     Dates: start: 20020101
  14. GLYBURIDE [Concomitant]
     Dates: start: 20060202

REACTIONS (6)
  - CARDIAC FAILURE [None]
  - CHEST PAIN [None]
  - PULMONARY OEDEMA [None]
  - RALES [None]
  - RESPIRATORY FAILURE [None]
  - SLEEP APNOEA SYNDROME [None]
